FAERS Safety Report 18650680 (Version 1)
Quarter: 2020Q4

REPORT INFORMATION
  Report Type: Spontaneous
  Country: US (occurrence: US)
  Receive Date: 20201222
  Receipt Date: 20201222
  Transmission Date: 20210114
  Serious: No
  Sender: FDA-Public Use
  Company Number: US-LUPIN PHARMACEUTICALS INC.-2020-06328

PATIENT
  Sex: Female

DRUGS (1)
  1. DAYSEE [Suspect]
     Active Substance: ETHINYL ESTRADIOL\LEVONORGESTREL
     Indication: ORAL CONTRACEPTION
     Dosage: (0.15MG/0.03MG)/(0.01MG), QD
     Route: 048
     Dates: start: 20200415

REACTIONS (1)
  - Metrorrhagia [Not Recovered/Not Resolved]
